FAERS Safety Report 17888756 (Version 2)
Quarter: 2020Q3

REPORT INFORMATION
  Report Type: Spontaneous
  Country: CA (occurrence: CA)
  Receive Date: 20200612
  Receipt Date: 20200715
  Transmission Date: 20201103
  Serious: Yes (Other)
  Sender: FDA-Public Use
  Company Number: CA-PFIZER INC-2017224178

PATIENT
  Age: 67 Year
  Sex: Female
  Weight: 76 kg

DRUGS (10)
  1. PANTOPRAZOLE [Concomitant]
     Active Substance: PANTOPRAZOLE
     Indication: GASTROOESOPHAGEAL REFLUX DISEASE
     Dosage: 40 MG, DAILY
     Route: 048
  2. COLLAGEN [Concomitant]
     Active Substance: COLLAGEN
     Dosage: UNK
  3. VITAMIN D [Concomitant]
     Active Substance: VITAMIN D NOS
     Dosage: UNK UNK, DAILY
  4. XGEVA [Concomitant]
     Active Substance: DENOSUMAB
     Dosage: UNK, MONTHLY
  5. IBRANCE [Suspect]
     Active Substance: PALBOCICLIB
     Indication: BREAST CANCER METASTATIC
     Dosage: 125 MG, CYCLIC (ONCE DAILY, FOR 21 DAYS AND OFF FOR 7 DAYS)
     Route: 048
     Dates: start: 20170525
  6. RANITIDINE. [Concomitant]
     Active Substance: RANITIDINE
     Indication: GASTROOESOPHAGEAL REFLUX DISEASE
     Dosage: 150 MG, 1X/DAY (AT BEDTIME)
     Route: 048
  7. LETROZOLE. [Concomitant]
     Active Substance: LETROZOLE
     Dosage: UNK, DAILY
     Route: 048
  8. PEPTO?BISMOL [Concomitant]
     Active Substance: BISMUTH SUBSALICYLATE
     Dosage: UNK, AS NEEDED
  9. LETROZOLE. [Concomitant]
     Active Substance: LETROZOLE
     Indication: BREAST CANCER FEMALE
     Dosage: 2.5 MG, DAILY
     Route: 048
  10. CALCIUM [Concomitant]
     Active Substance: CALCIUM
     Dosage: UNK, DAILY

REACTIONS (10)
  - Pulmonary oedema [Unknown]
  - Pulmonary congestion [Unknown]
  - Neoplasm progression [Unknown]
  - Dry skin [Recovered/Resolved]
  - Alopecia [Not Recovered/Not Resolved]
  - Chest pain [Unknown]
  - Toothache [Recovered/Resolved]
  - Nausea [Not Recovered/Not Resolved]
  - Pruritus [Recovered/Resolved]
  - Skin wrinkling [Unknown]

NARRATIVE: CASE EVENT DATE: 201706
